FAERS Safety Report 21315973 (Version 1)
Quarter: 2022Q3

REPORT INFORMATION
  Report Type: Report from Study
  Country: GT (occurrence: GT)
  Receive Date: 20220910
  Receipt Date: 20220910
  Transmission Date: 20221026
  Serious: Yes (Other)
  Sender: FDA-Public Use
  Company Number: GT-NOVARTISPH-NVSC2022GT203459

PATIENT
  Age: 79 Year
  Sex: Male

DRUGS (5)
  1. HYDROCHLOROTHIAZIDE\VALSARTAN [Suspect]
     Active Substance: HYDROCHLOROTHIAZIDE\VALSARTAN
     Indication: Hypertension
     Dosage: UNK (320/12.5 MG)
     Route: 048
  2. HYDROCHLOROTHIAZIDE\VALSARTAN [Suspect]
     Active Substance: HYDROCHLOROTHIAZIDE\VALSARTAN
     Dosage: UNK (320/25 MG)
     Route: 048
  3. EXFORGE HCT [Suspect]
     Active Substance: AMLODIPINE BESYLATE\HYDROCHLOROTHIAZIDE\VALSARTAN
     Indication: Hypertension
     Dosage: UNK (5/160/12.5 MG)
     Route: 048
     Dates: start: 2019, end: 202201
  4. DIOVAN [Suspect]
     Active Substance: VALSARTAN
     Indication: Hypertension
     Dosage: 80 MG, QD
     Route: 048
     Dates: start: 2020
  5. EXFORGE [Suspect]
     Active Substance: AMLODIPINE BESYLATE\VALSARTAN
     Indication: Hypertension
     Dosage: 1 DOSAGE FORM, QD; 10/320 MG
     Route: 048
     Dates: start: 202201

REACTIONS (3)
  - Cerebral infarction [Recovering/Resolving]
  - Blood pressure increased [Recovering/Resolving]
  - Overdose [Not Recovered/Not Resolved]

NARRATIVE: CASE EVENT DATE: 20220101
